FAERS Safety Report 9629528 (Version 2)
Quarter: 2013Q4

REPORT INFORMATION
  Report Type: Spontaneous
  Country: US (occurrence: US)
  Receive Date: 20131017
  Receipt Date: 20131108
  Transmission Date: 20140711
  Serious: Yes (Other)
  Sender: FDA-Public Use
  Company Number: US-JNJFOC-20131007862

PATIENT
  Sex: Female
  Weight: 63.5 kg

DRUGS (5)
  1. NUCYNTA ER [Suspect]
     Indication: NEUROFIBROMATOSIS
     Dosage: 2 DOSES PER DAY
     Route: 048
     Dates: start: 2012
  2. LOPRESSOR [Concomitant]
     Indication: TACHYCARDIA
     Dates: start: 2003
  3. NEURONTIN [Concomitant]
     Indication: PAIN
     Route: 048
     Dates: start: 2013
  4. HYDROMORPHONE [Concomitant]
     Indication: PAIN
     Route: 065
  5. MORPHINE [Concomitant]
     Indication: PAIN
     Route: 065

REACTIONS (7)
  - Convulsion [Not Recovered/Not Resolved]
  - Headache [Not Recovered/Not Resolved]
  - Confusional state [Not Recovered/Not Resolved]
  - Nasopharyngitis [Not Recovered/Not Resolved]
  - Oropharyngeal pain [Not Recovered/Not Resolved]
  - Inappropriate schedule of drug administration [Not Recovered/Not Resolved]
  - Drug dose omission [Not Recovered/Not Resolved]
